FAERS Safety Report 12322028 (Version 1)
Quarter: 2016Q2

REPORT INFORMATION
  Report Type: Spontaneous
  Country: US (occurrence: None)
  Receive Date: 20160429
  Receipt Date: 20160429
  Transmission Date: 20160815
  Serious: Yes (Hospitalization, Other)
  Sender: FDA-Public Use
  Company Number: None

PATIENT
  Age: 63 Year
  Sex: Male
  Weight: 88 kg

DRUGS (1)
  1. COLCHICINE. [Suspect]
     Active Substance: COLCHICINE
     Indication: GOUT
     Dosage: UD
     Route: 048
     Dates: start: 20151118, end: 20151125

REACTIONS (2)
  - Acute kidney injury [None]
  - Pain in extremity [None]

NARRATIVE: CASE EVENT DATE: 20151125
